FAERS Safety Report 4485831-4 (Version None)
Quarter: 2004Q3

REPORT INFORMATION
  Report Type: 
  Country: None (occurrence: None)
  Receive Date: 20040921
  Receipt Date: 20031105
  Transmission Date: 20050211
  Serious: Yes (Death, Hospitalization)
  Sender: FDA-Public Use
  Company Number: 163-20785-03110112

PATIENT
  Age: 49 Year
  Sex: Female
  Weight: 61.4 kg

DRUGS (1)
  1. THALOMID [Suspect]
     Indication: METASTASES TO CENTRAL NERVOUS SYSTEM
     Dosage: QHS, ORAL
     Route: 048
     Dates: start: 20030915, end: 20031007

REACTIONS (6)
  - DEATH [None]
  - DISEASE PROGRESSION [None]
  - HAEMOPTYSIS [None]
  - PLATELET COUNT DECREASED [None]
  - TUMOUR HAEMORRHAGE [None]
  - WHITE BLOOD CELL COUNT DECREASED [None]
